FAERS Safety Report 7670754-X (Version None)
Quarter: 2011Q3

REPORT INFORMATION
  Report Type: 
  Country: None (occurrence: None)
  Receive Date: 20110803
  Receipt Date: 20110719
  Transmission Date: 20111222
  Serious: Yes (Life-Threatening)
  Sender: FDA-Public Use
  Company Number: 2011MA009057

PATIENT
  Age: 25 Year
  Sex: Male

DRUGS (2)
  1. DONEPEZIL HYDROCHLORIDE [Suspect]
     Indication: AMNESIA
     Dosage: 10 MG; QD
     Dates: start: 20020101
  2. MEMANTINE [Concomitant]

REACTIONS (2)
  - VENTRICULAR FIBRILLATION [None]
  - EXTRASYSTOLES [None]
